FAERS Safety Report 17542627 (Version 1)
Quarter: 2020Q1

REPORT INFORMATION
  Report Type: Spontaneous
  Country: FR (occurrence: FR)
  Receive Date: 20200315
  Receipt Date: 20200315
  Transmission Date: 20200409
  Serious: Yes (Hospitalization)
  Sender: FDA-Public Use
  Company Number: FR-ZYDUS-048623

PATIENT
  Age: 77 Year
  Sex: Male
  Weight: 56 kg

DRUGS (3)
  1. ROXITHROMYCIN [Interacting]
     Active Substance: ROXITHROMYCIN
     Indication: PNEUMONIA
     Route: 048
     Dates: start: 20200214, end: 20200219
  2. COLCHICINE. [Interacting]
     Active Substance: COLCHICINE
     Indication: CHONDROCALCINOSIS
     Route: 048
     Dates: start: 201909, end: 20200220
  3. LEVOFLOXACIN. [Suspect]
     Active Substance: LEVOFLOXACIN
     Indication: BACTERIAL PROSTATITIS
     Route: 048
     Dates: start: 20200219, end: 20200221

REACTIONS (3)
  - Leukopenia [Recovering/Resolving]
  - Atrial fibrillation [Recovered/Resolved]
  - Pericarditis [Recovering/Resolving]

NARRATIVE: CASE EVENT DATE: 20200220
